FAERS Safety Report 24068404 (Version 1)
Quarter: 2024Q3

REPORT INFORMATION
  Report Type: Spontaneous
  Country: US (occurrence: US)
  Receive Date: 20240710
  Receipt Date: 20240710
  Transmission Date: 20241017
  Serious: No
  Sender: ROCHE
  Company Number: US-ROCHE-3523533

PATIENT
  Age: 59 Year
  Sex: Female

DRUGS (3)
  1. ROZLYTREK [Suspect]
     Active Substance: ENTRECTINIB
     Indication: Thyroid neoplasm
     Dosage: NO
     Route: 048
  2. ROZLYTREK [Suspect]
     Active Substance: ENTRECTINIB
     Dosage: YES
     Route: 048
     Dates: start: 20240125
  3. ARMOUR THYROID [Concomitant]
     Active Substance: THYROID, PORCINE

REACTIONS (2)
  - Neuropathy peripheral [Recovered/Resolved]
  - Off label use [Unknown]
